FAERS Safety Report 9311298 (Version 3)
Quarter: 2013Q3

REPORT INFORMATION
  Report Type: Spontaneous
  Country: US (occurrence: US)
  Receive Date: 20130528
  Receipt Date: 20130717
  Transmission Date: 20140515
  Serious: Yes (Hospitalization, Other)
  Sender: FDA-Public Use
  Company Number: US-ASTELLAS-2013US005412

PATIENT
  Age: 29 Year
  Sex: Male

DRUGS (1)
  1. PROGRAF [Suspect]
     Indication: RENAL TRANSPLANT
     Dosage: 5 MG, BID
     Route: 048
     Dates: start: 20100630

REACTIONS (3)
  - Treatment noncompliance [Unknown]
  - Kidney transplant rejection [Unknown]
  - Renal failure [Not Recovered/Not Resolved]
